FAERS Safety Report 5976733-2 (Version None)
Quarter: 2008Q4

REPORT INFORMATION
  Report Type: 
  Country: None (occurrence: None)
  Receive Date: 20081201
  Receipt Date: 20081201
  Transmission Date: 20090506
  Serious: Yes (Life-Threatening)
  Sender: FDA-Public Use
  Company Number: None

PATIENT
  Sex: Female

DRUGS (3)
  1. LAMOTRIGINE [Suspect]
     Dosage: 100MG ONE AND 1/2 QD PO
     Route: 048
     Dates: start: 20081001, end: 20081102
  2. LEXAPRO [Concomitant]
  3. ZOLPIDEM [Concomitant]

REACTIONS (2)
  - PRODUCT QUALITY ISSUE [None]
  - STEVENS-JOHNSON SYNDROME [None]
